FAERS Safety Report 7294029-6 (Version None)
Quarter: 2011Q1

REPORT INFORMATION
  Report Type: 
  Country: None (occurrence: None)
  Receive Date: 20110215
  Receipt Date: 20110209
  Transmission Date: 20110831
  Serious: Yes (Hospitalization, Other)
  Sender: FDA-Public Use
  Company Number: BR-ROCHE-715952

PATIENT
  Sex: Female
  Weight: 57 kg

DRUGS (2)
  1. TYLENOL [Concomitant]
  2. PEGINTERFERON ALFA-2A [Suspect]
     Indication: HEPATITIS B
     Route: 058
     Dates: start: 20100521

REACTIONS (10)
  - HAEMORRHAGE [None]
  - LIVER DISORDER [None]
  - PYREXIA [None]
  - BENIGN MUSCLE NEOPLASM [None]
  - WHITE BLOOD CELL COUNT DECREASED [None]
  - PLATELET COUNT DECREASED [None]
  - HEADACHE [None]
  - NAUSEA [None]
  - ANAEMIA [None]
  - MALAISE [None]
